FAERS Safety Report 9535832 (Version 1)
Quarter: 2013Q3

REPORT INFORMATION
  Report Type: Spontaneous
  Country: US (occurrence: None)
  Receive Date: 20130917
  Receipt Date: 20130917
  Transmission Date: 20140515
  Serious: Yes (Disabling)
  Sender: FDA-Public Use
  Company Number: None

PATIENT
  Age: 63 Year
  Sex: Female
  Weight: 65.77 kg

DRUGS (33)
  1. ABILIFY [Suspect]
     Indication: SCHIZOAFFECTIVE DISORDER
     Dosage: 5 MG 1 TABLET AT BEDTIME BY MOUTH
     Route: 048
     Dates: start: 20071006
  2. SYNTHROID [Concomitant]
  3. ALPRAZOLAM [Concomitant]
  4. RANITIDINE [Concomitant]
  5. PRAVASTATIN [Concomitant]
  6. ABILIFY [Concomitant]
  7. TRAZODONE [Concomitant]
  8. HYDROCODONE-ACETAMINOPHEN [Concomitant]
  9. OXYGEN [Concomitant]
  10. NITROSTAT [Concomitant]
  11. PROMETHAZINE [Concomitant]
  12. ONDANSETRON [Concomitant]
  13. COQ10 [Concomitant]
  14. CENTRUM SILVER [Concomitant]
  15. NIACIN B-3 SUST RELEASE [Concomitant]
  16. B12 [Concomitant]
  17. DHA [Concomitant]
  18. ULTIMATE OMEGA [Concomitant]
  19. CITRACAL [Concomitant]
  20. NIACIN [Concomitant]
  21. ACETYL-L-CAMITINE [Concomitant]
  22. L-ARGININE [Concomitant]
  23. MAGNESIUM CITRATE [Concomitant]
  24. MILK THISTLE [Concomitant]
  25. NAC (N-ACETYL CYSTEINE) [Concomitant]
  26. RESVERATROL [Concomitant]
  27. B-COMPLEX 50 [Concomitant]
  28. VIT C BUFFERED [Concomitant]
  29. VIT D-3 [Concomitant]
  30. VIT E-400 [Concomitant]
  31. GABA [Concomitant]
  32. RHODIOLA [Concomitant]
  33. ASPIRIN [Concomitant]

REACTIONS (8)
  - Knee arthroplasty [None]
  - Spinal deformity [None]
  - Pain in extremity [None]
  - Hypoaesthesia [None]
  - Balance disorder [None]
  - Walking aid user [None]
  - Weight decreased [None]
  - Spinal cord compression [None]
